FAERS Safety Report 24188862 (Version 1)
Quarter: 2024Q3

REPORT INFORMATION
  Report Type: Spontaneous
  Country: US (occurrence: US)
  Receive Date: 20240808
  Receipt Date: 20240808
  Transmission Date: 20241017
  Serious: No
  Sender: OTSUKA
  Company Number: US-OTSUKA-2023_033491

PATIENT
  Age: 26 Year
  Sex: Male
  Weight: 131.54 kg

DRUGS (1)
  1. ABILIFY MAINTENA [Suspect]
     Active Substance: ARIPIPRAZOLE
     Indication: Schizophrenia
     Dosage: 300 MG ONCE A MONTH
     Route: 030
     Dates: start: 2023

REACTIONS (6)
  - Device issue [Unknown]
  - Self-medication [Unknown]
  - Product dose omission issue [Unknown]
  - Underdose [Unknown]
  - Device defective [Unknown]
  - Inability to afford medication [Unknown]

NARRATIVE: CASE EVENT DATE: 20231221
